FAERS Safety Report 20479513 (Version 1)
Quarter: 2022Q1

REPORT INFORMATION
  Report Type: Spontaneous
  Country: CA (occurrence: CA)
  Receive Date: 20220216
  Receipt Date: 20220216
  Transmission Date: 20220423
  Serious: Yes (Other)
  Sender: FDA-Public Use
  Company Number: None

PATIENT
  Age: 63 Year
  Sex: Male

DRUGS (2)
  1. METHOTREXATE [Suspect]
     Active Substance: METHOTREXATE
     Dosage: 1 EVERY 1 WEEKS
  2. MESALAMINE [Concomitant]
     Active Substance: MESALAMINE
     Dosage: EVERY 1 DAYS

REACTIONS (3)
  - Frequent bowel movements [Unknown]
  - Rectal haemorrhage [Unknown]
  - Loss of personal independence in daily activities [Unknown]
